FAERS Safety Report 17944548 (Version 2)
Quarter: 2021Q1

REPORT INFORMATION
  Report Type: Spontaneous
  Country: AU (occurrence: AU)
  Receive Date: 20200625
  Receipt Date: 20210113
  Transmission Date: 20210419
  Serious: Yes (Other)
  Sender: FDA-Public Use
  Company Number: AU-MYLANLABS-2020M1058456

PATIENT
  Age: 19 Year
  Sex: Female

DRUGS (13)
  1. HEPARIN [Suspect]
     Active Substance: HEPARIN SODIUM
     Indication: PANCREATITIS
  2. INSULIN GLARGINE [Suspect]
     Active Substance: INSULIN GLARGINE
     Indication: HYPERTRIGLYCERIDAEMIA
     Dosage: UNK
     Route: 058
  3. HEPARIN [Suspect]
     Active Substance: HEPARIN SODIUM
     Indication: HYPERTRIGLYCERIDAEMIA
     Dosage: 5000 INTERNATIONAL UNIT, TIDTHREE TIMES DAILY
     Route: 058
  4. ALBUMIN [Suspect]
     Active Substance: ALBUMIN HUMAN
     Indication: PANCREATITIS
  5. GEMFIBROZIL. [Suspect]
     Active Substance: GEMFIBROZIL
     Indication: HYPERTRIGLYCERIDAEMIA
     Dosage: 200 MILLIGRAM, TID, THREE TIMES DAILY
     Route: 065
  6. INSULIN GLARGINE [Suspect]
     Active Substance: INSULIN GLARGINE
     Indication: PANCREATITIS
     Dosage: INFUSION
  7. INSULIN GLARGINE [Suspect]
     Active Substance: INSULIN GLARGINE
     Indication: FAMILIAL HYPERTRIGLYCERIDAEMIA
  8. ALBUMIN [Suspect]
     Active Substance: ALBUMIN HUMAN
     Indication: FAMILIAL HYPERTRIGLYCERIDAEMIA
  9. GEMFIBROZIL. [Suspect]
     Active Substance: GEMFIBROZIL
     Indication: PANCREATITIS
  10. HEPARIN [Suspect]
     Active Substance: HEPARIN SODIUM
     Indication: FAMILIAL HYPERTRIGLYCERIDAEMIA
  11. BETAMETHASONE. [Suspect]
     Active Substance: BETAMETHASONE
     Indication: MATERNAL THERAPY TO ENHANCE FOETAL LUNG MATURITY
     Route: 065
  12. ALBUMIN [Suspect]
     Active Substance: ALBUMIN HUMAN
     Indication: HYPERTRIGLYCERIDAEMIA
     Dosage: VIA CENTRAL VENOUS ACCESS
     Route: 065
  13. DEXTROSE. [Suspect]
     Active Substance: DEXTROSE
     Indication: FAMILIAL HYPERTRIGLYCERIDAEMIA

REACTIONS (3)
  - Drug ineffective [Unknown]
  - Maternal exposure during pregnancy [Recovered/Resolved]
  - Normal newborn [Recovered/Resolved]
